FAERS Safety Report 4954361-5 (Version None)
Quarter: 2006Q1

REPORT INFORMATION
  Report Type: 
  Country: None (occurrence: None)
  Receive Date: 20060327
  Receipt Date: 20060314
  Transmission Date: 20060701
  Serious: Yes (Other)
  Sender: FDA-Public Use
  Company Number: US-MERCK-0603USA02423

PATIENT
  Sex: Female

DRUGS (3)
  1. SINGULAIR [Suspect]
     Indication: HYPERSENSITIVITY
     Route: 048
     Dates: end: 20060313
  2. PREDNISONE [Concomitant]
     Route: 065
  3. [THERAPY UNSPECIFIED] [Concomitant]
     Route: 065

REACTIONS (3)
  - ADVERSE EVENT [None]
  - HEADACHE [None]
  - UNEVALUABLE EVENT [None]
